FAERS Safety Report 17486145 (Version 1)
Quarter: 2020Q1

REPORT INFORMATION
  Report Type: Report from Study
  Country: US (occurrence: US)
  Receive Date: 20200303
  Receipt Date: 20200303
  Transmission Date: 20200409
  Serious: Yes (Other)
  Sender: FDA-Public Use
  Company Number: US-ROCHE-2553188

PATIENT
  Sex: Male
  Weight: 126.67 kg

DRUGS (3)
  1. ESBRIET [Suspect]
     Active Substance: PIRFENIDONE
     Indication: IDIOPATHIC PULMONARY FIBROSIS
     Route: 048
     Dates: start: 202001
  2. OXYGEN. [Concomitant]
     Active Substance: OXYGEN
  3. ESBRIET [Suspect]
     Active Substance: PIRFENIDONE
     Indication: IDIOPATHIC PULMONARY FIBROSIS
     Dosage: TAKING THREE PILLS OF PIRFENIDONE THREE TIMES A DAY ;ONGOING: YES
     Route: 048
     Dates: start: 201908

REACTIONS (3)
  - Mobility decreased [Unknown]
  - Pneumonia [Recovered/Resolved]
  - Body height decreased [Not Recovered/Not Resolved]
